FAERS Safety Report 8051469-5 (Version None)
Quarter: 2012Q1

REPORT INFORMATION
  Report Type: 
  Country: None (occurrence: None)
  Receive Date: 20120117
  Receipt Date: 20120109
  Transmission Date: 20120608
  Serious: Yes (Other)
  Sender: FDA-Public Use
  Company Number: US-ASTRAZENECA-2011SE68462

PATIENT
  Age: 47 Year
  Sex: Female
  Weight: 81.6 kg

DRUGS (4)
  1. VIIBRYD [Concomitant]
  2. SEROQUEL XR [Suspect]
     Indication: BIPOLAR DISORDER
     Route: 048
     Dates: start: 20100101
  3. SEROQUEL XR [Suspect]
     Indication: AFFECTIVE DISORDER
     Route: 048
     Dates: start: 20100101
  4. CELEXA [Concomitant]

REACTIONS (10)
  - DRUG DOSE OMISSION [None]
  - MENTAL DISORDER [None]
  - MENTAL IMPAIRMENT [None]
  - RESTLESSNESS [None]
  - CRYING [None]
  - SUICIDAL IDEATION [None]
  - ANXIETY [None]
  - DISTURBANCE IN ATTENTION [None]
  - NAUSEA [None]
  - WEIGHT INCREASED [None]
